FAERS Safety Report 6219714-6 (Version None)
Quarter: 2009Q2

REPORT INFORMATION
  Report Type: 
  Country: None (occurrence: None)
  Receive Date: 20090609
  Receipt Date: 20090603
  Transmission Date: 20091009
  Serious: Yes (Hospitalization, Other)
  Sender: FDA-Public Use
  Company Number: US-BAUSCH-2009BL002706

PATIENT
  Age: 43 Year
  Sex: Female

DRUGS (3)
  1. CIPROFLOXACIN [Suspect]
     Indication: ARTHROPOD BITE
     Route: 048
  2. CEPHALEXIN [Concomitant]
     Indication: ARTHROPOD BITE
     Route: 048
  3. AMOXICILLIN AND CLAVULANATE POTASSIUM [Concomitant]
     Indication: ARTHROPOD BITE
     Route: 048

REACTIONS (1)
  - CHOREA [None]
